FAERS Safety Report 8363665-8 (Version None)
Quarter: 2012Q1

REPORT INFORMATION
  Report Type: 
  Country: None (occurrence: None)
  Receive Date: 20120323
  Receipt Date: 20110608
  Transmission Date: 20120608
  Serious: Yes (Other)
  Sender: FDA-Public Use
  Company Number: 163-21880-11041539

PATIENT
  Age: 78 Year
  Sex: Male
  Weight: 80.2867 kg

DRUGS (10)
  1. REVLIMID [Suspect]
     Indication: PROSTATE CANCER
     Dosage: 25 MG, 1 IN 1 D, PO 10 MG, 1 IN 1 D, PO 5 MG, 1 IN 1 D, PO 2.5 MG 1 IN 2 D, PO
     Route: 048
     Dates: start: 20090901, end: 20100101
  2. REVLIMID [Suspect]
     Indication: MULTIPLE MYELOMA
     Dosage: 25 MG, 1 IN 1 D, PO 10 MG, 1 IN 1 D, PO 5 MG, 1 IN 1 D, PO 2.5 MG 1 IN 2 D, PO
     Route: 048
     Dates: start: 20090901, end: 20100101
  3. REVLIMID [Suspect]
     Indication: PROSTATE CANCER
     Dosage: 25 MG, 1 IN 1 D, PO 10 MG, 1 IN 1 D, PO 5 MG, 1 IN 1 D, PO 2.5 MG 1 IN 2 D, PO
     Route: 048
     Dates: start: 20101001, end: 20110312
  4. REVLIMID [Suspect]
     Indication: MULTIPLE MYELOMA
     Dosage: 25 MG, 1 IN 1 D, PO 10 MG, 1 IN 1 D, PO 5 MG, 1 IN 1 D, PO 2.5 MG 1 IN 2 D, PO
     Route: 048
     Dates: start: 20101001, end: 20110312
  5. REVLIMID [Suspect]
     Indication: PROSTATE CANCER
     Dosage: 25 MG, 1 IN 1 D, PO 10 MG, 1 IN 1 D, PO 5 MG, 1 IN 1 D, PO 2.5 MG 1 IN 2 D, PO
     Route: 048
     Dates: start: 20090201, end: 20090101
  6. REVLIMID [Suspect]
     Indication: MULTIPLE MYELOMA
     Dosage: 25 MG, 1 IN 1 D, PO 10 MG, 1 IN 1 D, PO 5 MG, 1 IN 1 D, PO 2.5 MG 1 IN 2 D, PO
     Route: 048
     Dates: start: 20090201, end: 20090101
  7. HYDROCODONE/APAP (REMEDEINE) [Concomitant]
  8. SIMVASTATIN [Concomitant]
  9. ALLOPURINOL [Concomitant]
  10. WARFARIN SODIUM [Concomitant]

REACTIONS (1)
  - VENOUS THROMBOSIS LIMB [None]
